FAERS Safety Report 13822469 (Version 1)
Quarter: 2017Q3

REPORT INFORMATION
  Report Type: Spontaneous
  Country: NL (occurrence: NL)
  Receive Date: 20170801
  Receipt Date: 20170801
  Transmission Date: 20171127
  Serious: Yes (Hospitalization)
  Sender: FDA-Public Use
  Company Number: NL-ELI_LILLY_AND_COMPANY-NL201707011664

PATIENT
  Age: 34 Year
  Sex: Male

DRUGS (1)
  1. OLANZAPINE. [Suspect]
     Active Substance: OLANZAPINE
     Indication: SCHIZOPHRENIA
     Dosage: 210 MG, MONTHLY (1/M)
     Dates: start: 20130716, end: 20170110

REACTIONS (7)
  - Vertigo [Recovered/Resolved]
  - Heart rate irregular [Recovered/Resolved]
  - Blood pressure fluctuation [Recovered/Resolved]
  - Delirium [Recovered/Resolved]
  - Dizziness [Unknown]
  - Depressed level of consciousness [Recovered/Resolved]
  - Altered state of consciousness [Unknown]

NARRATIVE: CASE EVENT DATE: 20170110
